FAERS Safety Report 11627022 (Version 2)
Quarter: 2015Q4

REPORT INFORMATION
  Report Type: Report from Study
  Country: DE (occurrence: DE)
  Receive Date: 20151013
  Receipt Date: 20151119
  Transmission Date: 20160304
  Serious: Yes (Hospitalization)
  Sender: FDA-Public Use
  Company Number: DE-ABBVIE-15P-062-1475470-00

PATIENT
  Age: 68 Year
  Sex: Male

DRUGS (9)
  1. ZOLPIDEM [Concomitant]
     Active Substance: ZOLPIDEM\ZOLPIDEM TARTRATE
     Indication: PRODUCT USED FOR UNKNOWN INDICATION
     Route: 065
  2. CIRCADIN [Concomitant]
     Active Substance: MELATONIN
     Indication: PRODUCT USED FOR UNKNOWN INDICATION
  3. DUODOPA [Suspect]
     Active Substance: CARBIDOPA\LEVODOPA
     Indication: PARKINSON^S DISEASE
     Dosage: MD 10ML, CRD 3.5ML/H, ED 1ML
     Route: 050
     Dates: start: 20141120
  4. DUODOPA [Suspect]
     Active Substance: CARBIDOPA\LEVODOPA
     Dosage: MD 10ML, CRD 3.5ML/H, ED 2.0 ML
     Route: 050
     Dates: start: 20141120
  5. LEVOCOMP [Concomitant]
     Active Substance: CARBIDOPA\LEVODOPA
     Indication: PRODUCT USED FOR UNKNOWN INDICATION
     Dosage: 100/25MG
     Route: 065
  6. AZILECT [Concomitant]
     Active Substance: RASAGILINE MESYLATE
     Indication: PRODUCT USED FOR UNKNOWN INDICATION
     Route: 065
  7. RIVOTRIL [Concomitant]
     Active Substance: CLONAZEPAM
     Indication: PRODUCT USED FOR UNKNOWN INDICATION
  8. QUETIAPIN [Concomitant]
     Active Substance: QUETIAPINE
     Indication: HALLUCINATION
     Route: 065
  9. SPASMEX [Concomitant]
     Active Substance: TROSPIUM CHLORIDE
     Indication: PRODUCT USED FOR UNKNOWN INDICATION
     Dosage: 1-0-2
     Route: 065

REACTIONS (18)
  - Peripheral coldness [Unknown]
  - Hypokinesia [Unknown]
  - Decreased appetite [Unknown]
  - Autonomic nervous system imbalance [Unknown]
  - Hyperhidrosis [Unknown]
  - Abdominal pain [Not Recovered/Not Resolved]
  - Depression [Recovering/Resolving]
  - Weight decreased [Not Recovered/Not Resolved]
  - Hallucination, visual [Unknown]
  - Gastrooesophageal reflux disease [Unknown]
  - Abnormal dreams [Unknown]
  - Dyspnoea [Recovering/Resolving]
  - Anxiety [Unknown]
  - Pulmonary mass [Unknown]
  - Constipation [Unknown]
  - Panic attack [Recovering/Resolving]
  - Body temperature fluctuation [Unknown]
  - Muscle rigidity [Unknown]

NARRATIVE: CASE EVENT DATE: 2015
